FAERS Safety Report 8722027 (Version 3)
Quarter: 2012Q4

REPORT INFORMATION
  Report Type: 
  Country: US (occurrence: US)
  Receive Date: 20120814
  Receipt Date: 20121123
  Transmission Date: 20130627
  Serious: Yes (Death)
  Sender: FDA-Public Use
  Company Number: US-PFIZER INC-2012193444

PATIENT
  Age: 96 Year
  Sex: Female
  Weight: 72.56 kg

DRUGS (2)
  1. XALATAN [Suspect]
     Indication: GLAUCOMA
     Dosage: one drop in each eye, 1x/day
     Route: 047
  2. TIMOLOL [Concomitant]
     Indication: GLAUCOMA
     Dosage: UNK

REACTIONS (2)
  - Pulmonary thrombosis [Fatal]
  - Dyspnoea [Fatal]
